FAERS Safety Report 23937499 (Version 1)
Quarter: 2024Q2

REPORT INFORMATION
  Report Type: Spontaneous
  Country: FR (occurrence: FR)
  Receive Date: 20240604
  Receipt Date: 20240604
  Transmission Date: 20240715
  Serious: Yes (Other)
  Sender: FDA-Public Use
  Company Number: FR-HALEON-2179326

PATIENT
  Age: 62 Year
  Sex: Female

DRUGS (1)
  1. DICLOFENAC [Suspect]
     Active Substance: DICLOFENAC
     Indication: Arthralgia
     Route: 048
     Dates: start: 20240515

REACTIONS (1)
  - Diarrhoea haemorrhagic [Recovered/Resolved]

NARRATIVE: CASE EVENT DATE: 20240515
